FAERS Safety Report 17979619 (Version 1)
Quarter: 2020Q3

REPORT INFORMATION
  Report Type: Spontaneous
  Country: PH (occurrence: PH)
  Receive Date: 20200703
  Receipt Date: 20200703
  Transmission Date: 20201103
  Serious: Yes (Hospitalization, Other)
  Sender: FDA-Public Use
  Company Number: NVSC2020PH187124

PATIENT
  Age: 33 Year
  Sex: Female

DRUGS (1)
  1. GLIVEC [Suspect]
     Active Substance: IMATINIB MESYLATE
     Indication: CHRONIC MYELOID LEUKAEMIA
     Dosage: 800 MG (8 X 100 MG TABLETS)
     Route: 065

REACTIONS (3)
  - Haemoglobin decreased [Unknown]
  - Appendicitis [Unknown]
  - Ascites [Unknown]

NARRATIVE: CASE EVENT DATE: 20200628
